FAERS Safety Report 5968672-8 (Version None)
Quarter: 2008Q4

REPORT INFORMATION
  Report Type: 
  Country: None (occurrence: None)
  Receive Date: 20081126
  Receipt Date: 20081118
  Transmission Date: 20090506
  Serious: Yes (Hospitalization)
  Sender: FDA-Public Use
  Company Number: FI-GENENTECH-271939

PATIENT
  Sex: Male

DRUGS (2)
  1. EFALIZUMAB [Suspect]
     Indication: PSORIASIS
     Dosage: 0.9 ML, 1/WEEK
     Route: 058
     Dates: start: 20080121
  2. MIRANAX [Concomitant]
     Indication: PAIN
     Dosage: 550 MG, PRN
     Route: 048

REACTIONS (1)
  - EPIDEMIC NEPHROPATHY [None]
